FAERS Safety Report 7432170-5 (Version None)
Quarter: 2011Q2

REPORT INFORMATION
  Report Type: 
  Country: None (occurrence: None)
  Receive Date: 20110422
  Receipt Date: 20110408
  Transmission Date: 20111010
  Serious: Yes (Hospitalization)
  Sender: FDA-Public Use
  Company Number: NO-JNJFOC-20110403900

PATIENT
  Sex: Male

DRUGS (2)
  1. REMICADE [Suspect]
     Indication: COLITIS ULCERATIVE
     Route: 042
  2. CIPROFLOXACIN HCL [Suspect]
     Indication: PRODUCT USED FOR UNKNOWN INDICATION
     Route: 042

REACTIONS (11)
  - HYPOTENSION [None]
  - C-REACTIVE PROTEIN INCREASED [None]
  - INFUSION RELATED REACTION [None]
  - ASTHENIA [None]
  - DYSPNOEA [None]
  - LOSS OF CONSCIOUSNESS [None]
  - CHILLS [None]
  - INFLUENZA LIKE ILLNESS [None]
  - MUSCULOSKELETAL DISCOMFORT [None]
  - FREQUENT BOWEL MOVEMENTS [None]
  - HYPERSENSITIVITY [None]
